FAERS Safety Report 14184782 (Version 1)
Quarter: 2017Q4

REPORT INFORMATION
  Report Type: Spontaneous
  Country: US (occurrence: US)
  Receive Date: 20171113
  Receipt Date: 20171113
  Transmission Date: 20180321
  Serious: No
  Sender: FDA-Public Use
  Company Number: US-BAUSCH-BL-2017-018227

PATIENT
  Age: 9 Year
  Sex: Female
  Weight: 43.58 kg

DRUGS (2)
  1. ALAWAY [Suspect]
     Active Substance: KETOTIFEN FUMARATE
     Indication: EYE PRURITUS
     Dosage: ONE DROP IN RIGHT EYE ONCE
     Route: 047
     Dates: start: 20170522, end: 20170522
  2. MULTIVITAMIN CHEWABLE [Concomitant]
     Indication: PROPHYLAXIS
     Route: 048
     Dates: start: 2009

REACTIONS (2)
  - Eye irritation [Recovered/Resolved]
  - Pain [Recovered/Resolved]

NARRATIVE: CASE EVENT DATE: 20170522
